FAERS Safety Report 24277909 (Version 1)
Quarter: 2024Q3

REPORT INFORMATION
  Report Type: Report from Study
  Country: CO (occurrence: CO)
  Receive Date: 20240903
  Receipt Date: 20240903
  Transmission Date: 20241017
  Serious: Yes (Hospitalization, Other)
  Sender: ABBVIE
  Company Number: CO-ABBVIE-5902681

PATIENT
  Sex: Male
  Weight: 59 kg

DRUGS (5)
  1. RINVOQ [Suspect]
     Active Substance: UPADACITINIB
     Indication: Rheumatoid arthritis
     Dosage: 15 MILLIGRAM, FORM STRENGTH: 15 MG
     Route: 048
     Dates: end: 20240726
  2. RINVOQ [Suspect]
     Active Substance: UPADACITINIB
     Indication: Rheumatoid arthritis
     Dosage: 15 MILLIGRAM, FORM STRENGTH: 15 MG
     Route: 048
     Dates: start: 20230317
  3. ETANERCEPT [Concomitant]
     Active Substance: ETANERCEPT
     Indication: Arthritis
     Dosage: FREQUENCY TEXT: WEEKLY (TUESDAYS)
     Dates: start: 2023
  4. METHOTREXATE [Concomitant]
     Active Substance: METHOTREXATE
     Indication: Arthritis
     Dosage: FREQUENCY TEXT: WEEKLY (MONDAYS)
     Dates: start: 2023
  5. LEVOFLOXACIN [Concomitant]
     Active Substance: LEVOFLOXACIN
     Indication: Tuberculosis
     Dosage: 1 UNKNOWN
     Route: 048
     Dates: start: 2023, end: 2023

REACTIONS (7)
  - Abdominal pain [Recovered/Resolved]
  - Pneumonia [Recovering/Resolving]
  - Tuberculosis [Recovered/Resolved]
  - Discouragement [Unknown]
  - Decreased appetite [Unknown]
  - Nephrolithiasis [Unknown]
  - Lung disorder [Recovered/Resolved]

NARRATIVE: CASE EVENT DATE: 20230101
